FAERS Safety Report 17411299 (Version 1)
Quarter: 2020Q1

REPORT INFORMATION
  Report Type: Spontaneous
  Country: DE (occurrence: DE)
  Receive Date: 20200213
  Receipt Date: 20200213
  Transmission Date: 20200409
  Serious: Yes (Disabling, Other)
  Sender: FDA-Public Use
  Company Number: DE-TEVA-2020-DE-1184629

PATIENT
  Age: 72 Year
  Sex: Male
  Weight: 81.5 kg

DRUGS (10)
  1. FLUVASTATIN 40MG [Suspect]
     Active Substance: FLUVASTATIN SODIUM
     Indication: HYPERCHOLESTEROLAEMIA
     Dosage: 40 MILLIGRAM DAILY; INTAKE FOR ABOUT 10 YEARS
  2. SITAGLIPTIN 100MG [Concomitant]
     Indication: DIABETES MELLITUS
     Dosage: 100 MILLIGRAM DAILY; 100 MG
     Dates: start: 201901, end: 201907
  3. LERCANIDIPIN 20MG [Concomitant]
     Indication: HYPERTENSION
     Dosage: 0-0-1?EINNAHME SEIT CA. 2-3 JAHREN
  4. RAMIPRIL 5MG [Concomitant]
     Active Substance: RAMIPRIL
     Indication: HYPERTENSION
     Dosage: 10 MILLIGRAM DAILY; INTAKE FOR ABOUT 10 YEARS
  5. RANEXA [Suspect]
     Active Substance: RANOLAZINE
     Dosage: 500-0-375
     Route: 048
     Dates: start: 2014
  6. ISDN 60MG [Concomitant]
     Indication: ANGINA PECTORIS
     Dosage: INTAKE FOR ABOUT 2.5 YEARS
  7. ASS 100 [Concomitant]
     Active Substance: ASPIRIN
     Indication: CARDIAC OPERATION
     Dosage: 1-0-0
     Dates: start: 2005
  8. PANTOPRAZOL [Concomitant]
     Active Substance: PANTOPRAZOLE SODIUM
     Indication: GASTRITIS PROPHYLAXIS
     Dosage: 20 MG
  9. PANTOPRAZOL [Concomitant]
     Active Substance: PANTOPRAZOLE SODIUM
     Dosage: 1-0-1?EINNAHME SEIT 3-4 JAHREN
  10. METFORMIN [Concomitant]
     Active Substance: METFORMIN HYDROCHLORIDE
     Indication: DIABETES MELLITUS
     Dosage: 2000 MILLIGRAM DAILY; INTAKE FOR ABOUT 12 YEARS
     Route: 048

REACTIONS (3)
  - Haematoma [Recovering/Resolving]
  - Muscle rupture [Not Recovered/Not Resolved]
  - Pain in extremity [Not Recovered/Not Resolved]

NARRATIVE: CASE EVENT DATE: 2015
